FAERS Safety Report 8412470-2 (Version None)
Quarter: 2012Q2

REPORT INFORMATION
  Report Type: 
  Country: None (occurrence: None)
  Receive Date: 20120605
  Receipt Date: 20120518
  Transmission Date: 20120825
  Serious: No
  Sender: FDA-Public Use
  Company Number: US-AMGEN-USASP2012020054

PATIENT
  Age: 53 Year
  Sex: Female

DRUGS (1)
  1. ENBREL [Suspect]
     Indication: RHEUMATOID ARTHRITIS
     Dosage: 50 MG, QWK
     Dates: start: 20070701

REACTIONS (8)
  - INJECTION SITE PRURITUS [None]
  - DIARRHOEA [None]
  - FOOD INTOLERANCE [None]
  - BLOOD IMMUNOGLOBULIN G INCREASED [None]
  - BLOOD IMMUNOGLOBULIN A DECREASED [None]
  - INJECTION SITE URTICARIA [None]
  - RHEUMATOID FACTOR INCREASED [None]
  - FOOD ALLERGY [None]
